FAERS Safety Report 7582916-0 (Version None)
Quarter: 2011Q2

REPORT INFORMATION
  Report Type: 
  Country: None (occurrence: None)
  Receive Date: 20110630
  Receipt Date: 20110628
  Transmission Date: 20111010
  Serious: Yes (Other)
  Sender: FDA-Public Use
  Company Number: US-PFIZER INC-2011019158

PATIENT
  Sex: Female
  Weight: 77 kg

DRUGS (10)
  1. XALATAN [Suspect]
     Indication: CATARACT
  2. LUMIGAN [Suspect]
     Indication: GLAUCOMA
     Dosage: 1 GTT, UNK, IN EACH EYE
     Route: 031
     Dates: start: 20110301, end: 20110626
  3. XALATAN [Suspect]
     Indication: GLAUCOMA
  4. NADOLOL [Concomitant]
     Indication: HYPERTENSION
     Dosage: 40 MG, 2X/DAY
  5. XALATAN [Suspect]
     Indication: INTRAOCULAR PRESSURE INCREASED
     Dosage: ONE DROP, 1X/DAY, IN EACH EYE
     Dates: start: 20030101, end: 20110301
  6. SYNTHROID [Concomitant]
     Indication: HYPERTHYROIDISM
     Dosage: 50 MCG, DAILY
  7. ATACAND [Concomitant]
     Dosage: UNK
  8. LUMIGAN [Suspect]
     Indication: CATARACT
  9. SIMVASTATIN [Concomitant]
     Indication: BLOOD CHOLESTEROL INCREASED
     Dosage: 10 MG, DAILY
  10. ASPIRIN [Suspect]
     Indication: CARDIAC DISORDER
     Dosage: UNK
     Dates: start: 20110501, end: 20110501

REACTIONS (5)
  - VISUAL IMPAIRMENT [None]
  - EYE DISORDER [None]
  - EYE IRRITATION [None]
  - PRODUCT QUALITY ISSUE [None]
  - HAEMORRHAGE [None]
